FAERS Safety Report 20975204 (Version 1)
Quarter: 2022Q2

REPORT INFORMATION
  Report Type: Spontaneous
  Country: CH (occurrence: CH)
  Receive Date: 20220617
  Receipt Date: 20220617
  Transmission Date: 20220721
  Serious: Yes (Other)
  Sender: FDA-Public Use
  Company Number: None

PATIENT
  Age: 96 Year
  Sex: Male

DRUGS (7)
  1. HYDROCHLOROTHIAZIDE\LOSARTAN POTASSIUM [Suspect]
     Active Substance: HYDROCHLOROTHIAZIDE\LOSARTAN POTASSIUM
     Dosage: 100/12.5MG
     Route: 048
     Dates: end: 20220422
  2. ALDACTONE [Suspect]
     Active Substance: SPIRONOLACTONE
     Dosage: UNIT DOSE : 25 MG
     Route: 048
     Dates: end: 20220422
  3. TORSEMIDE [Concomitant]
     Active Substance: TORSEMIDE
     Dosage: UNIT DOSE : 20 MG , FREQUENCY TIME : 1 DAY
     Route: 048
  4. Dormicum [Concomitant]
  5. PHENPROCOUMON [Concomitant]
     Active Substance: PHENPROCOUMON
  6. TILUR [Concomitant]
     Active Substance: ACEMETACIN
  7. VENLAFAXINE [Concomitant]
     Active Substance: VENLAFAXINE HYDROCHLORIDE

REACTIONS (2)
  - Hyperkalaemia [Recovered/Resolved]
  - Hyponatraemia [Recovered/Resolved]

NARRATIVE: CASE EVENT DATE: 20220422
